FAERS Safety Report 4594902-3 (Version None)
Quarter: 2005Q1

REPORT INFORMATION
  Report Type: 
  Country: None (occurrence: None)
  Receive Date: 20050223
  Receipt Date: 20050131
  Transmission Date: 20050727
  Serious: Yes (Life-Threatening)
  Sender: FDA-Public Use
  Company Number: 2005028730

PATIENT
  Age: 72 Year
  Sex: Male

DRUGS (8)
  1. XANAX [Suspect]
     Indication: DEPRESSION
     Dosage: 1.25 MG (0.25 MG, TID), ORAL
     Route: 048
  2. RISPERDAL [Suspect]
     Indication: PSYCHOTIC DISORDER
     Dosage: 1 MG (DAILY), ORAL
     Route: 048
  3. MEPROBAMATE [Suspect]
     Indication: ILL-DEFINED DISORDER
     Dosage: 1 DOSE FORM (DAILY), ORAL
     Route: 048
  4. METOPROLOL TARTRATE [Suspect]
     Indication: ESSENTIAL HYPERTENSION
     Dosage: 50 MG (100 MG, DAILY), ORAL
     Route: 048
  5. CAPOZIDE 25/15 [Suspect]
     Indication: ESSENTIAL HYPERTENSION
     Dosage: 0.5 DOSE FORM (DAILY), ORAL
     Route: 048
  6. ACETYLSALICYLIC ACID SRT [Suspect]
     Indication: ACUTE MYOCARDIAL INFARCTION
     Dosage: 160 MG (160 MG, DAILY), ORAL
     Route: 048
  7. ALFUZOSIN (ALFUZOSIN) [Concomitant]
  8. MACROGOL (MACROGOL) [Concomitant]

REACTIONS (14)
  - ATRIOVENTRICULAR BLOCK COMPLETE [None]
  - BLOOD BICARBONATE DECREASED [None]
  - BLOOD GLUCOSE INCREASED [None]
  - BLOOD PH DECREASED [None]
  - BLOOD PRESSURE INCREASED [None]
  - BUNDLE BRANCH BLOCK LEFT [None]
  - CONFUSIONAL STATE [None]
  - DEPRESSED LEVEL OF CONSCIOUSNESS [None]
  - FOREIGN BODY ASPIRATION [None]
  - HAEMOPTYSIS [None]
  - HEART RATE INCREASED [None]
  - INTERSTITIAL LUNG DISEASE [None]
  - OXYGEN SATURATION DECREASED [None]
  - TACHYPNOEA [None]
